FAERS Safety Report 8579901-9 (Version None)
Quarter: 2012Q3

REPORT INFORMATION
  Report Type: 
  Country: None (occurrence: None)
  Receive Date: 20120808
  Receipt Date: 20120730
  Transmission Date: 20120928
  Serious: Yes (Other)
  Sender: FDA-Public Use
  Company Number: GXBR2012US001722

PATIENT
  Sex: Male
  Weight: 77.1 kg

DRUGS (7)
  1. EZETIMIBE [Concomitant]
     Dosage: 5 MG, UNK
  2. AMLODIPINE [Concomitant]
     Dosage: 10 MG, UNK
  3. TRIAMTERENE AND HYDROCHLOROTHIAZIDE [Concomitant]
     Dosage: UNK DF, UNK
  4. NIACIN [Concomitant]
     Dosage: 500 MG, UNK
  5. CARVEDILOL [Concomitant]
     Dosage: UNK DF, UNK
  6. OMEPRAZOLE [Suspect]
     Indication: GASTROOESOPHAGEAL REFLUX DISEASE
     Dosage: 20 MG, BID
     Route: 048
  7. PLAVIX [Concomitant]
     Dosage: UNK DF, UNK

REACTIONS (2)
  - SPINAL COLUMN STENOSIS [None]
  - SPINAL FRACTURE [None]
